FAERS Safety Report 21368992 (Version 1)
Quarter: 2022Q3

REPORT INFORMATION
  Report Type: Spontaneous
  Country: DE (occurrence: DE)
  Receive Date: 20220923
  Receipt Date: 20220923
  Transmission Date: 20221027
  Serious: Yes (Hospitalization, Other)
  Sender: FDA-Public Use
  Company Number: DE-ADRED-08075-01

PATIENT
  Age: 78 Year
  Sex: Female
  Weight: 74 kg

DRUGS (10)
  1. EMPAGLIFLOZIN [Suspect]
     Active Substance: EMPAGLIFLOZIN
     Indication: Product used for unknown indication
  2. AMLODIPINE\HYDROCHLOROTHIAZIDE\OLMESARTAN [Concomitant]
     Active Substance: AMLODIPINE\HYDROCHLOROTHIAZIDE\OLMESARTAN
     Indication: Product used for unknown indication
     Dosage: 40|10|25 MG, 0.5-0-0-0
  3. METAMIZOL [Concomitant]
     Active Substance: METAMIZOLE SODIUM
     Indication: Product used for unknown indication
  4. INSULIN GLARGINE [Concomitant]
     Active Substance: INSULIN GLARGINE
     Indication: Product used for unknown indication
  5. METOPROLOL [Concomitant]
     Active Substance: METOPROLOL
     Indication: Product used for unknown indication
  6. Acetylsalicyls?re [Concomitant]
     Indication: Product used for unknown indication
  7. SIMVASTATIN [Concomitant]
     Active Substance: SIMVASTATIN
     Indication: Product used for unknown indication
  8. OMEPRAZOLE [Concomitant]
     Active Substance: OMEPRAZOLE
     Indication: Product used for unknown indication
     Dosage: 20 MG, 0-1-0-0
  9. METFORMIN\SITAGLIPTIN [Concomitant]
     Active Substance: METFORMIN\SITAGLIPTIN
     Indication: Product used for unknown indication
     Dosage: 50|1000 MG,
  10. TORSEMIDE [Concomitant]
     Active Substance: TORSEMIDE
     Indication: Product used for unknown indication

REACTIONS (13)
  - Hyperglycaemia [Recovered/Resolved]
  - Pyrexia [Recovered/Resolved]
  - Electrocardiogram abnormal [Recovered/Resolved]
  - Polyuria [Recovered/Resolved]
  - General physical health deterioration [Recovered/Resolved]
  - Systemic infection [Recovered/Resolved]
  - Vomiting [Recovered/Resolved]
  - Disorientation [Recovered/Resolved]
  - Dysuria [Recovered/Resolved]
  - Renal impairment [Recovered/Resolved]
  - Nausea [Recovered/Resolved]
  - Electrolyte imbalance [Recovered/Resolved]
  - Depressed level of consciousness [Recovered/Resolved]
